FAERS Safety Report 10314141 (Version 2)
Quarter: 2014Q3

REPORT INFORMATION
  Report Type: Spontaneous
  Country: US (occurrence: US)
  Receive Date: 20140718
  Receipt Date: 20140807
  Transmission Date: 20150326
  Serious: Yes (Other)
  Sender: FDA-Public Use
  Company Number: US-PFIZER INC-2014196172

PATIENT
  Age: 48 Year
  Sex: Male
  Weight: 113.38 kg

DRUGS (9)
  1. LYRICA [Suspect]
     Active Substance: PREGABALIN
     Indication: NEUROPATHY PERIPHERAL
     Dosage: 225 MG, 2X/DAY
     Route: 048
  2. ZOCOR [Concomitant]
     Active Substance: SIMVASTATIN
     Dosage: 20 MG, 1X/DAY(EVERY EVENING)
     Route: 048
  3. LORAZEPAM. [Concomitant]
     Active Substance: LORAZEPAM
     Dosage: 5 MG, UNK
  4. NORCO [Concomitant]
     Active Substance: ACETAMINOPHEN\HYDROCODONE BITARTRATE
     Indication: NEUROPATHY PERIPHERAL
     Dosage: 10/325 MG(1 TAB EVERY SIX HOURS AS NEEDED)
     Route: 048
  5. AMBIEN [Concomitant]
     Active Substance: ZOLPIDEM TARTRATE
     Indication: SLEEP DISORDER
     Dosage: 10 MG, AS NEEDED( 1 TABLET NIGHTLY AS NEEDED)
     Route: 048
  6. CARVEDIOL [Concomitant]
     Active Substance: CARVEDILOL
     Dosage: 625 MG, UNK
  7. OMEGA-3 FATTY ACIDS-FISH OIL [Concomitant]
     Indication: BLOOD CHOLESTEROL
     Dosage: 300/1000 MG, 2X/DAY(2 TIMES DAILY WITH MEALS)
     Route: 048
  8. COZAAR [Concomitant]
     Active Substance: LOSARTAN POTASSIUM
     Indication: HYPERTENSION
     Dosage: 25 MG, 2X/DAY
     Route: 048
  9. COREG [Concomitant]
     Active Substance: CARVEDILOL
     Dosage: 3.125 MG, 2X/DAY
     Route: 048

REACTIONS (11)
  - Type V hyperlipidaemia [Not Recovered/Not Resolved]
  - Diabetes mellitus [Not Recovered/Not Resolved]
  - Hypertension [Not Recovered/Not Resolved]
  - Arthritis [Not Recovered/Not Resolved]
  - Back pain [Unknown]
  - Hypoaesthesia [Unknown]
  - Chest pain [Unknown]
  - Gait disturbance [Unknown]
  - Pain in extremity [Not Recovered/Not Resolved]
  - Electrocardiogram abnormal [Unknown]
  - Insomnia [Not Recovered/Not Resolved]

NARRATIVE: CASE EVENT DATE: 20130315
